FAERS Safety Report 8997841 (Version 1)
Quarter: 2013Q1

REPORT INFORMATION
  Report Type: Spontaneous
  Country: JP (occurrence: JP)
  Receive Date: 20130104
  Receipt Date: 20130104
  Transmission Date: 20140127
  Serious: Yes (Death)
  Sender: FDA-Public Use
  Company Number: JP-GLAXOSMITHKLINE-B0855445A

PATIENT
  Age: 78 Year
  Sex: Male

DRUGS (10)
  1. REQUIP [Suspect]
     Indication: PARKINSON^S DISEASE
     Dosage: 2MG THREE TIMES PER DAY
     Route: 048
     Dates: end: 20121116
  2. REQUIP [Suspect]
     Indication: PARKINSON^S DISEASE
     Dosage: 8MG PER DAY
     Route: 048
     Dates: start: 20121116, end: 20121125
  3. MENESIT [Concomitant]
     Route: 048
     Dates: end: 20121125
  4. DROXIDOPA [Concomitant]
     Route: 048
     Dates: end: 20121125
  5. TRERIEF [Concomitant]
     Route: 048
     Dates: end: 20121125
  6. OPALMON [Concomitant]
     Route: 048
  7. MAGLAX [Concomitant]
     Route: 048
  8. SYMMETREL [Concomitant]
     Route: 048
  9. DIAZEPAM [Concomitant]
     Route: 065
  10. LENDORMIN [Concomitant]
     Route: 048

REACTIONS (1)
  - Death [Fatal]
